FAERS Safety Report 5670829-0 (Version None)
Quarter: 2008Q2

REPORT INFORMATION
  Report Type: 
  Country: None (occurrence: None)
  Receive Date: 20080305
  Receipt Date: 20070828
  Transmission Date: 20081010
  Serious: Yes (Life-Threatening, Hospitalization)
  Sender: FDA-Public Use
  Company Number: BDI-010121

PATIENT
  Age: 70 Year
  Sex: Female
  Weight: 55 kg

DRUGS (1)
  1. ISOVUE-300 [Suspect]
     Indication: SUBMANDIBULAR MASS
     Dosage: 90ML ONCE INTRAVENOUS
     Route: 042
     Dates: start: 20070828, end: 20070828

REACTIONS (1)
  - ANAPHYLACTIC SHOCK [None]
